FAERS Safety Report 25706510 (Version 3)
Quarter: 2025Q4

REPORT INFORMATION
  Report Type: Spontaneous
  Country: US (occurrence: US)
  Receive Date: 20250820
  Receipt Date: 20251223
  Transmission Date: 20260117
  Serious: Yes (Other)
  Sender: CATALYST PHARMA
  Company Number: US-CATALYST PHARMACEUTICALS-US-CATA-25-00977

PATIENT
  Sex: Male
  Weight: 39.002 kg

DRUGS (5)
  1. AGAMREE [Suspect]
     Active Substance: VAMOROLONE
     Indication: Duchenne muscular dystrophy
     Dosage: 4.8 ML ONCE A DAY
     Route: 048
     Dates: start: 20240425
  2. AGAMREE [Suspect]
     Active Substance: VAMOROLONE
     Dosage: 6 ML ONCE A DAY
     Route: 048
     Dates: start: 20250405
  3. AGAMREE [Suspect]
     Active Substance: VAMOROLONE
     Dosage: 5.9 ML
     Route: 048
     Dates: start: 20251208
  4. IBUPROFEN [Concomitant]
     Active Substance: IBUPROFEN
     Indication: Pyrexia
     Dosage: 5 ML AS NEEDED
     Route: 048
  5. CORTICOSTEROID NOS [Concomitant]
     Active Substance: CORTICOSTEROID NOS
     Indication: Product used for unknown indication
     Dosage: UNKNOWN
     Route: 065

REACTIONS (3)
  - Duchenne muscular dystrophy [Not Recovered/Not Resolved]
  - Disease progression [Not Recovered/Not Resolved]
  - Dyspepsia [Not Recovered/Not Resolved]

NARRATIVE: CASE EVENT DATE: 20250101
